FAERS Safety Report 5269743-4 (Version None)
Quarter: 2007Q1

REPORT INFORMATION
  Report Type: 
  Country: None (occurrence: None)
  Receive Date: 20061214
  Receipt Date: 20060906
  Transmission Date: 20070707
  Serious: Yes (Hospitalization, Other)
  Sender: FDA-Public Use
  Company Number: 2006117643

PATIENT
  Age: 66 Year
  Sex: Male
  Weight: 112.4921 kg

DRUGS (1)
  1. BEXTRA [Suspect]
     Indication: PAIN
     Dates: start: 20050301

REACTIONS (2)
  - EMOTIONAL DISORDER [None]
  - MYOCARDIAL INFARCTION [None]
